FAERS Safety Report 10590750 (Version 3)
Quarter: 2015Q1

REPORT INFORMATION
  Report Type: Spontaneous
  Country: RU (occurrence: RU)
  Receive Date: 20141118
  Receipt Date: 20150114
  Transmission Date: 20150720
  Serious: Yes (Other)
  Sender: FDA-Public Use
  Company Number: RU-SA-2014SA155902

PATIENT
  Age: 86 Year
  Sex: Female
  Weight: 59 kg

DRUGS (2)
  1. KARDIKET [Concomitant]
     Indication: MYOCARDIAL ISCHAEMIA
     Route: 048
  2. TRENTAL [Suspect]
     Active Substance: PENTOXIFYLLINE
     Indication: THROMBOPHLEBITIS
     Route: 048
     Dates: end: 201409

REACTIONS (3)
  - Decreased appetite [Not Recovered/Not Resolved]
  - Off label use [Unknown]
  - Gastric mucosal hypertrophy [Not Recovered/Not Resolved]

NARRATIVE: CASE EVENT DATE: 201409
